FAERS Safety Report 14822224 (Version 1)
Quarter: 2018Q2

REPORT INFORMATION
  Report Type: Spontaneous
  Country: US (occurrence: DE)
  Receive Date: 20180427
  Receipt Date: 20180427
  Transmission Date: 20180711
  Serious: Yes (Hospitalization, Other)
  Sender: FDA-Public Use
  Company Number: US-SUNOVION-2018SUN001654

PATIENT

DRUGS (7)
  1. RAMIPRIL HC [Concomitant]
     Dosage: UNK
  2. METFORMIN AL [Concomitant]
     Dosage: UNK
  3. INDACATEROL AND GLYCOPYRROLATE [Suspect]
     Active Substance: GLYCOPYRROLATE\INDACATEROL MALEATE
     Indication: CHRONIC OBSTRUCTIVE PULMONARY DISEASE
     Dosage: 1 DF (110 UG/ 50 UG), QD
     Route: 055
     Dates: start: 20140520
  4. CIPROFLOXACIN. [Suspect]
     Active Substance: CIPROFLOXACIN
     Indication: HELICOBACTER INFECTION
     Dosage: UNK
     Route: 065
     Dates: end: 20150814
  5. DAXAS [Concomitant]
     Active Substance: ROFLUMILAST
     Dosage: UNK
     Dates: start: 20140826, end: 20150814
  6. BISOPROLOL AL [Concomitant]
     Dosage: UNK
  7. ALLOPURINOL. [Concomitant]
     Active Substance: ALLOPURINOL
     Dosage: UNK

REACTIONS (5)
  - Hepatosplenomegaly [Recovering/Resolving]
  - Alcohol abuse [Recovered/Resolved]
  - Dyspnoea [Recovering/Resolving]
  - Liver function test increased [Recovering/Resolving]
  - Helicobacter infection [Recovered/Resolved]

NARRATIVE: CASE EVENT DATE: 20150814
